FAERS Safety Report 15736398 (Version 2)
Quarter: 2019Q1

REPORT INFORMATION
  Report Type: Report from Study
  Country: US (occurrence: US)
  Receive Date: 20181218
  Receipt Date: 20190116
  Transmission Date: 20190417
  Serious: Yes (Death, Hospitalization, Other)
  Sender: FDA-Public Use
  Company Number: US-GILEAD-2018-0380244

PATIENT
  Age: 36 Year
  Sex: Male

DRUGS (4)
  1. ORKAMBI [Concomitant]
     Active Substance: IVACAFTOR\LUMACAFTOR
  2. TOBRAMYCIN. [Concomitant]
     Active Substance: TOBRAMYCIN
  3. AZTREONAM LYSINE [Suspect]
     Active Substance: AZTREONAM LYSINE
     Indication: CYSTIC FIBROSIS
     Dosage: 75 MG, TIDX28, OFF 28
     Route: 055
     Dates: start: 20131024
  4. CEFTAZIDIME. [Concomitant]
     Active Substance: CEFTAZIDIME

REACTIONS (2)
  - Cystic fibrosis [Unknown]
  - Death [Fatal]

NARRATIVE: CASE EVENT DATE: 20181129
